FAERS Safety Report 7951880-4 (Version None)
Quarter: 2011Q4

REPORT INFORMATION
  Report Type: 
  Country: None (occurrence: None)
  Receive Date: 20111201
  Receipt Date: 20111201
  Transmission Date: 20120403
  Serious: Yes (Hospitalization, Disabling, Other)
  Sender: FDA-Public Use
  Company Number: None

PATIENT
  Age: 13 Year
  Sex: Male
  Weight: 40.823 kg

DRUGS (1)
  1. ZOFRAN [Suspect]
     Indication: NAUSEA
     Dosage: 8 MG
     Route: 048
     Dates: start: 20100112, end: 20100113

REACTIONS (4)
  - TIC [None]
  - NECK PAIN [None]
  - SELF ESTEEM DECREASED [None]
  - DYSTONIA [None]
